FAERS Safety Report 17952020 (Version 2)
Quarter: 2020Q4

REPORT INFORMATION
  Report Type: Report from Study
  Country: US (occurrence: US)
  Receive Date: 20200627
  Receipt Date: 20201109
  Transmission Date: 20210113
  Serious: Yes (Other)
  Sender: FDA-Public Use
  Company Number: US-ROCHE-2631542

PATIENT
  Age: 54 Year
  Sex: Female
  Weight: 70 kg

DRUGS (1)
  1. ATEZOLIZUMAB. [Suspect]
     Active Substance: ATEZOLIZUMAB
     Indication: CERVIX CARCINOMA
     Dosage: ON 15/APR/2020, SHE RECEIVED MOST RECENT DOSE OF ATEZOLIZUMAB 1200 MG.
     Route: 042
     Dates: start: 20200317

REACTIONS (2)
  - Chronic kidney disease [Unknown]
  - Anaemia [Unknown]
